FAERS Safety Report 12047495 (Version 1)
Quarter: 2016Q1

REPORT INFORMATION
  Report Type: Spontaneous
  Country: US (occurrence: US)
  Receive Date: 20160208
  Receipt Date: 20160208
  Transmission Date: 20160526
  Serious: Yes (Life-Threatening)
  Sender: FDA-Public Use
  Company Number: US-FRESENIUS KABI-FK201600630

PATIENT
  Age: 22 Year
  Sex: Female

DRUGS (5)
  1. LIDOCAINE (MANUFACTURER UNKNOWN) [Suspect]
     Active Substance: LIDOCAINE
     Indication: ANALGESIC THERAPY
     Route: 008
  2. OXYTOCIN. [Concomitant]
     Active Substance: OXYTOCIN
     Indication: PRODUCT USED FOR UNKNOWN INDICATION
     Route: 042
  3. LIDOCAINE (MANUFACTURER UNKNOWN) [Suspect]
     Active Substance: LIDOCAINE
     Route: 008
  4. MORPHINE SULPHATE [Concomitant]
     Active Substance: MORPHINE SULFATE
     Indication: ANALGESIC THERAPY
     Route: 042
  5. LIDOCAINE/EPINEPHRINE (MANUFACTURER UNKNOWN) [Suspect]
     Active Substance: EPINEPHRINE BITARTRATE\LIDOCAINE HYDROCHLORIDE
     Indication: PRODUCT USED FOR UNKNOWN INDICATION
     Route: 008

REACTIONS (4)
  - Sensory loss [Recovered/Resolved]
  - Anaesthetic complication [Recovered/Resolved]
  - Exposure during pregnancy [Recovered/Resolved]
  - Coma [Recovered/Resolved]
